FAERS Safety Report 17310553 (Version 1)
Quarter: 2020Q1

REPORT INFORMATION
  Report Type: Spontaneous
  Country: US (occurrence: US)
  Receive Date: 20200123
  Receipt Date: 20200123
  Transmission Date: 20200409
  Serious: No
  Sender: FDA-Public Use
  Company Number: US-ROCHE-2436977

PATIENT
  Age: 50 Year
  Sex: Female

DRUGS (7)
  1. DACLIZUMAB [Concomitant]
     Active Substance: DACLIZUMAB
  2. NATALIZUMAB [Concomitant]
     Active Substance: NATALIZUMAB
  3. RITUXIMAB. [Suspect]
     Active Substance: RITUXIMAB
     Indication: MULTIPLE SCLEROSIS
     Route: 042
  4. OCRELIZUMAB. [Concomitant]
     Active Substance: OCRELIZUMAB
     Route: 065
  5. GLATIRAMER ACETATE. [Concomitant]
     Active Substance: GLATIRAMER ACETATE
  6. FINGOLIMOD. [Concomitant]
     Active Substance: FINGOLIMOD
  7. DIMETHYL FUMARATE [Concomitant]
     Active Substance: DIMETHYL FUMARATE

REACTIONS (5)
  - Serum sickness [Recovered/Resolved]
  - Pruritus [Unknown]
  - Urticaria [Unknown]
  - Off label use [Unknown]
  - Intentional product use issue [Unknown]
